FAERS Safety Report 8678216 (Version 4)
Quarter: 2013Q1

REPORT INFORMATION
  Report Type: Report from Study
  Country: JP (occurrence: JP)
  Receive Date: 20120705
  Receipt Date: 20130117
  Transmission Date: 20140127
  Serious: Yes (Hospitalization, Other)
  Sender: FDA-Public Use
  Company Number: JP-009507513-2012SP035847

PATIENT
  Age: 68 Year
  Sex: Male
  Weight: 54 kg

DRUGS (5)
  1. PEGINTRON [Suspect]
     Indication: CHRONIC HEPATITIS C
     Dosage: 1.5MCG/KG/WEEK
     Route: 058
     Dates: start: 20120403, end: 20120409
  2. PEGINTRON [Suspect]
     Dosage: 1MCG/KG/WEEK
     Route: 058
     Dates: start: 20120410
  3. REBETOL [Suspect]
     Indication: CHRONIC HEPATITIS C
     Dosage: 600 MG, QD
     Route: 048
     Dates: start: 20120403
  4. TELAVIC [Suspect]
     Indication: CHRONIC HEPATITIS C
     Dosage: 2250 MG, QD
     Route: 048
     Dates: start: 20120403, end: 20120613
  5. ZYLORIC [Concomitant]
     Indication: HYPERURICAEMIA
     Dosage: FORMULATION: POR
     Route: 048
     Dates: start: 20120410

REACTIONS (5)
  - Enanthema [Unknown]
  - Rash [Unknown]
  - Rash [Recovered/Resolved]
  - Erythema multiforme [Recovering/Resolving]
  - Platelet count decreased [Not Recovered/Not Resolved]
